FAERS Safety Report 12942449 (Version 1)
Quarter: 2016Q4

REPORT INFORMATION
  Report Type: Other
  Country: None (occurrence: US)
  Receive Date: 20161114
  Receipt Date: 20161114
  Transmission Date: 20170207
  Serious: Yes (Other)
  Sender: FDA-Public Use
  Company Number: US-GUTHY-RENKER LLC-1059520

PATIENT
  Age: 75 Year
  Sex: Female

DRUGS (3)
  1. DIABETES MEDICATION AND TAKES 30 UNDISCLOSED MEDICATIONS [Concomitant]
  2. MEANINGFUL BEAUTY CINDY CRAWFORD ANTIOXIDANT SPF 20 UVA/UVB [Suspect]
     Active Substance: AVOBENZONE\OCTINOXATE\OCTISALATE\OXYBENZONE
     Indication: PROPHYLAXIS AGAINST SOLAR RADIATION
     Route: 061
     Dates: start: 20161029
  3. VITAMIN D, E AND C SUPPLEMENTS [Concomitant]

REACTIONS (2)
  - Pharyngeal oedema [Recovered/Resolved]
  - Rash [None]

NARRATIVE: CASE EVENT DATE: 20161029
